FAERS Safety Report 23523860 (Version 1)
Quarter: 2024Q1

REPORT INFORMATION
  Report Type: Spontaneous
  Country: ES (occurrence: ES)
  Receive Date: 20240214
  Receipt Date: 20240214
  Transmission Date: 20240410
  Serious: Yes (Other)
  Sender: FDA-Public Use
  Company Number: None

PATIENT
  Age: 73 Year
  Sex: Male
  Weight: 85 kg

DRUGS (2)
  1. CARBOPLATIN [Interacting]
     Active Substance: CARBOPLATIN
     Indication: Laryngeal squamous cell carcinoma
     Dosage: UNK
     Route: 042
     Dates: start: 20231227
  2. FLUOROURACIL [Interacting]
     Active Substance: FLUOROURACIL
     Indication: Laryngeal squamous cell carcinoma
     Dosage: UNK
     Route: 042
     Dates: start: 20231227

REACTIONS (3)
  - Hyperbilirubinaemia [Recovering/Resolving]
  - Hepatocellular injury [Recovered/Resolved]
  - Drug interaction [Unknown]

NARRATIVE: CASE EVENT DATE: 20240104
